FAERS Safety Report 17696623 (Version 1)
Quarter: 2020Q2

REPORT INFORMATION
  Report Type: Spontaneous
  Country: US (occurrence: US)
  Receive Date: 20200423
  Receipt Date: 20200423
  Transmission Date: 20200714
  Serious: No
  Sender: FDA-Public Use
  Company Number: US-PURDUE-USA-2019-0149453

PATIENT
  Sex: Male

DRUGS (1)
  1. OXYCODONE HYDROCHLORIDE. [Suspect]
     Active Substance: OXYCODONE HYDROCHLORIDE
     Indication: PAIN MANAGEMENT
     Dosage: 10 MG, QID
     Route: 048

REACTIONS (3)
  - Product physical issue [Not Recovered/Not Resolved]
  - Insomnia [Not Recovered/Not Resolved]
  - Therapeutic product effect decreased [Not Recovered/Not Resolved]
